FAERS Safety Report 4308226-2 (Version None)
Quarter: 2004Q1

REPORT INFORMATION
  Report Type: 
  Country: None (occurrence: None)
  Receive Date: 20040301
  Receipt Date: 20030907
  Transmission Date: 20041129
  Serious: No
  Sender: FDA-Public Use
  Company Number: US-BRISTOL-MYERS SQUIBB COMPANY-12376299

PATIENT
  Age: 61 Year
  Sex: Male

DRUGS (12)
  1. AVAPRO [Suspect]
     Indication: HYPERTENSION
     Dosage: 150 MG DAILY FOR ONE DAY 28-AUG-03. BEFORE AND AFTER EVENT 75 MG DAILY.
     Route: 048
     Dates: start: 20030213
  2. GLUCOPHAGE [Suspect]
     Indication: DIABETES MELLITUS
     Dosage: DOSE REGIMEN:  1500 MILLIGRAMS IN THE MORNING, 1000 MILLIGRAMS IN THE EVENING.
     Route: 048
     Dates: start: 20020328
  3. METAMUCIL-2 [Concomitant]
     Indication: CONSTIPATION
     Dosage: ^IN WATER^
  4. RISPERDAL [Concomitant]
     Indication: SCHIZOPHRENIA
  5. ZOCOR [Concomitant]
     Indication: BLOOD CHOLESTEROL INCREASED
  6. AZMACORT [Concomitant]
     Indication: CHRONIC OBSTRUCTIVE AIRWAYS DISEASE
  7. ALBUTEROL [Concomitant]
     Indication: CHRONIC OBSTRUCTIVE AIRWAYS DISEASE
  8. ASPIRIN [Concomitant]
     Indication: DIABETES MELLITUS
  9. CLOZAPINE [Concomitant]
     Indication: SCHIZOPHRENIA
  10. GABAPENTIN [Concomitant]
     Indication: AFFECTIVE DISORDER
  11. MIRALAX [Concomitant]
     Indication: CONSTIPATION
     Dosage: ^WITH WATER^
  12. ATROVENT [Concomitant]
     Indication: CHRONIC OBSTRUCTIVE AIRWAYS DISEASE

REACTIONS (1)
  - HYPOTENSION [None]
